FAERS Safety Report 21633660 (Version 2)
Quarter: 2022Q4

REPORT INFORMATION
  Report Type: Report from Study
  Country: US (occurrence: US)
  Receive Date: 20221123
  Receipt Date: 20221206
  Transmission Date: 20230113
  Serious: Yes (Other)
  Sender: FDA-Public Use
  Company Number: US-PFIZER INC-202201318859

PATIENT
  Age: 52 Year
  Sex: Female

DRUGS (1)
  1. IBRANCE [Suspect]
     Active Substance: PALBOCICLIB
     Indication: Breast cancer female
     Dosage: UNK

REACTIONS (6)
  - Pleural effusion [Recovered/Resolved]
  - Dyspnoea [Unknown]
  - Epistaxis [Unknown]
  - Dizziness [Unknown]
  - Alopecia [Unknown]
  - Pyrexia [Unknown]
